FAERS Safety Report 24603644 (Version 1)
Quarter: 2024Q4

REPORT INFORMATION
  Report Type: Spontaneous
  Country: US (occurrence: US)
  Receive Date: 20241111
  Receipt Date: 20241111
  Transmission Date: 20250115
  Serious: No
  Sender: MERCK
  Company Number: US-009507513-2410USA005152

PATIENT
  Age: 57 Year
  Sex: Female
  Weight: 73.5 kg

DRUGS (21)
  1. WINREVAIR [Suspect]
     Active Substance: SOTATERCEPT-CSRK
     Indication: Product used for unknown indication
     Dosage: 60 MILLIGRAM
     Dates: start: 20240927
  2. TREPROSTINIL SODIUM [Suspect]
     Active Substance: TREPROSTINIL SODIUM
     Indication: Pulmonary arterial hypertension
     Dosage: 10 MG/ML; ALSO REPORTED AS 0.045 MICROGRAM/KG
     Route: 058
     Dates: start: 20230224
  3. ADEMPAS [Concomitant]
     Active Substance: RIOCIGUAT
     Dosage: UNK
  4. FUROSEMIDE [Concomitant]
     Active Substance: FUROSEMIDE
     Dosage: UNK
  5. OMEPRAZOLE [Concomitant]
     Active Substance: OMEPRAZOLE
     Dosage: UNK
  6. TYLENOL EXTRA STRENGTH [Concomitant]
     Active Substance: ACETAMINOPHEN
     Dosage: UNK
  7. IMODIUM [Concomitant]
     Active Substance: LOPERAMIDE HYDROCHLORIDE
     Dosage: UNK
  8. AZELASTINE HYDROCHLORIDE [Concomitant]
     Active Substance: AZELASTINE HYDROCHLORIDE
     Dosage: UNK
  9. PREMARIN [Concomitant]
     Active Substance: ESTROGENS, CONJUGATED
     Dosage: UNK
  10. KETAMINE HYDROCHLORIDE [Concomitant]
     Active Substance: KETAMINE HYDROCHLORIDE
     Dosage: UNK
  11. LECITHIN [Concomitant]
     Active Substance: LECITHIN
     Dosage: UNK
  12. OPSUMIT [Concomitant]
     Active Substance: MACITENTAN
     Dosage: UNK
  13. CLONIDINE [Concomitant]
     Active Substance: CLONIDINE
     Dosage: UNK
  14. KETOPROFEN [Concomitant]
     Active Substance: KETOPROFEN
     Dosage: UNK
  15. OXYGEN [Concomitant]
     Active Substance: OXYGEN
     Dosage: UNK
  16. LIDOCAINE HYDROCHLORIDE [Concomitant]
     Active Substance: LIDOCAINE HYDROCHLORIDE
     Dosage: UNK
  17. DICYCLOMINE HYDROCHLORIDE [Concomitant]
     Active Substance: DICYCLOMINE HYDROCHLORIDE
     Dosage: UNK
  18. AMITRIPTYLINE HYDROCHLORIDE [Concomitant]
     Active Substance: AMITRIPTYLINE HYDROCHLORIDE
     Dosage: UNK
  19. GABAPENTIN [Concomitant]
     Active Substance: GABAPENTIN
     Dosage: UNK
  20. POLOXAMER [Concomitant]
     Active Substance: POLOXAMER
     Dosage: UNK
  21. LORATADINE [Concomitant]
     Active Substance: LORATADINE
     Dosage: UNK

REACTIONS (5)
  - Diarrhoea [Unknown]
  - Headache [Unknown]
  - Abdominal pain upper [Unknown]
  - Injection site bruising [Unknown]
  - Eye haemorrhage [Unknown]

NARRATIVE: CASE EVENT DATE: 20240101
